FAERS Safety Report 9802553 (Version 1)
Quarter: 2014Q1

REPORT INFORMATION
  Report Type: Report from Study
  Country: US (occurrence: US)
  Receive Date: 20140108
  Receipt Date: 20140108
  Transmission Date: 20141002
  Serious: Yes (Hospitalization)
  Sender: FDA-Public Use
  Company Number: US-ROCHE-1329976

PATIENT
  Age: 94 Year
  Sex: Female

DRUGS (1)
  1. LUCENTIS [Suspect]
     Indication: MACULAR DEGENERATION
     Dosage: RIGHT EYE
     Route: 050

REACTIONS (1)
  - Cerebrovascular accident [Recovering/Resolving]
